FAERS Safety Report 5104333-5 (Version None)
Quarter: 2006Q3

REPORT INFORMATION
  Report Type: 
  Country: None (occurrence: None)
  Receive Date: 20060912
  Receipt Date: 20060912
  Transmission Date: 20061208
  Serious: Yes (Other)
  Sender: FDA-Public Use
  Company Number: None

PATIENT
  Age: 27 Year
  Sex: Female

DRUGS (1)
  1. BUPROPION SR    150MG     PENN LABS -A GSK COMPANY- [Suspect]
     Indication: ATTENTION DEFICIT/HYPERACTIVITY DISORDER
     Dosage: 150MG  BID  PO
     Route: 048
     Dates: start: 20060909, end: 20060910

REACTIONS (2)
  - ANXIETY [None]
  - SUICIDAL IDEATION [None]
